FAERS Safety Report 8219882-0 (Version None)
Quarter: 2012Q1

REPORT INFORMATION
  Report Type: 
  Country: None (occurrence: None)
  Receive Date: 20120319
  Receipt Date: 20120305
  Transmission Date: 20120608
  Serious: Yes (Other)
  Sender: FDA-Public Use
  Company Number: GB-PFIZER INC-2012037065

PATIENT
  Age: 51 Year
  Sex: Male

DRUGS (1)
  1. RAMIPRIL [Suspect]
     Indication: CARDIAC DISORDER
     Dosage: UNK
     Route: 065
     Dates: start: 20090101, end: 20090101

REACTIONS (6)
  - HYPOAESTHESIA [None]
  - MEMORY IMPAIRMENT [None]
  - DIZZINESS [None]
  - FATIGUE [None]
  - DISTURBANCE IN ATTENTION [None]
  - ANGIOEDEMA [None]
